FAERS Safety Report 7571327-X (Version None)
Quarter: 2011Q2

REPORT INFORMATION
  Report Type: 
  Country: None (occurrence: None)
  Receive Date: 20110624
  Receipt Date: 20110615
  Transmission Date: 20111010
  Serious: Yes (Hospitalization)
  Sender: FDA-Public Use
  Company Number: B0708030A

PATIENT
  Sex: Female
  Weight: 45 kg

DRUGS (14)
  1. P N TWIN [Suspect]
     Dosage: 1000ML PER DAY
     Route: 042
     Dates: start: 20070702, end: 20070802
  2. ALKERAN [Suspect]
     Indication: ALLOGENIC BONE MARROW TRANSPLANTATION THERAPY
     Dosage: 40MGM2 PER DAY
     Route: 042
     Dates: start: 20070705, end: 20070706
  3. METHOTREXATE [Suspect]
     Indication: IMMUNOSUPPRESSION
     Dosage: 1.5MG PER DAY
     Route: 065
     Dates: start: 20070711, end: 20070716
  4. SEROTONE [Concomitant]
     Dosage: 10MG PER DAY
     Route: 042
     Dates: start: 20070705, end: 20070708
  5. LEVOFLOXACIN [Concomitant]
     Dosage: 300MG PER DAY
     Route: 048
     Dates: start: 20070705, end: 20070803
  6. CEFTAZIDIME [Concomitant]
     Dosage: 2G PER DAY
     Route: 042
     Dates: start: 20070705, end: 20070707
  7. GASPORT [Concomitant]
     Dosage: 20MG PER DAY
     Route: 048
     Dates: start: 20070705, end: 20070803
  8. MYCOSYST [Concomitant]
     Dosage: 400MG PER DAY
     Route: 048
     Dates: start: 20070705, end: 20070803
  9. FLUDARA [Suspect]
     Indication: ALLOGENIC BONE MARROW TRANSPLANTATION THERAPY
     Dosage: 30MGM2 PER DAY
     Route: 042
     Dates: start: 20070703, end: 20070708
  10. URSO 250 [Concomitant]
     Dosage: 600MG PER DAY
     Route: 048
     Dates: start: 20070705, end: 20070803
  11. ZOVIRAX [Concomitant]
     Dosage: 600MG PER DAY
     Route: 048
     Dates: start: 20070705, end: 20070803
  12. AMIKACIN [Concomitant]
     Dosage: 200MG PER DAY
     Route: 042
     Dates: start: 20070705, end: 20070707
  13. TACROLIMUS [Concomitant]
     Indication: IMMUNOSUPPRESSION
     Dosage: 1.2MG PER DAY
     Route: 065
     Dates: start: 20070709, end: 20070802
  14. HUMULIN R [Concomitant]
     Dates: start: 20070705, end: 20070802

REACTIONS (1)
  - FEBRILE NEUTROPENIA [None]
